FAERS Safety Report 6520325-3 (Version None)
Quarter: 2009Q4

REPORT INFORMATION
  Report Type: 
  Country: None (occurrence: None)
  Receive Date: 20091229
  Receipt Date: 20091215
  Transmission Date: 20100525
  Serious: Yes (Other)
  Sender: FDA-Public Use
  Company Number: AU-AMGEN-QUU380513

PATIENT
  Age: 26 Year
  Sex: Female

DRUGS (2)
  1. NEUPOGEN [Suspect]
     Indication: NEUTROPENIA
     Dates: start: 19960101
  2. NEULASTA [Suspect]
     Indication: DRUG USE FOR UNKNOWN INDICATION

REACTIONS (10)
  - BONE PAIN [None]
  - DRUG INTOLERANCE [None]
  - FEBRILE NEUTROPENIA [None]
  - HEADACHE [None]
  - MALAISE [None]
  - PYREXIA [None]
  - SINUSITIS [None]
  - SKIN INFECTION [None]
  - URINARY TRACT INFECTION [None]
  - VOMITING [None]
